FAERS Safety Report 15766494 (Version 1)
Quarter: 2018Q4

REPORT INFORMATION
  Report Type: Spontaneous
  Country: US (occurrence: US)
  Receive Date: 20181227
  Receipt Date: 20181227
  Transmission Date: 20190205
  Serious: Yes (Hospitalization)
  Sender: FDA-Public Use
  Company Number: US-PFIZER INC-2018529421

PATIENT
  Age: 46 Year
  Sex: Female

DRUGS (1)
  1. LYRICA [Suspect]
     Active Substance: PREGABALIN
     Indication: SEIZURE
     Dosage: 700 MG, DAILY (200MG 1 CAPSULE BY MOUTH 3 TIMES A DAY AND 100MG ONE TIME BY MOUTH AT BEDTIME)
     Route: 048

REACTIONS (4)
  - Fatigue [Unknown]
  - Seizure [Recovered/Resolved]
  - Overdose [Unknown]
  - Amnesia [Unknown]

NARRATIVE: CASE EVENT DATE: 201812
